FAERS Safety Report 4847544-6 (Version None)
Quarter: 2005Q4

REPORT INFORMATION
  Report Type: 
  Country: None (occurrence: None)
  Receive Date: 20051205
  Receipt Date: 20051121
  Transmission Date: 20060501
  Serious: Yes (Hospitalization)
  Sender: FDA-Public Use
  Company Number: TCI2005A04755

PATIENT
  Age: 40 Year
  Sex: Female

DRUGS (1)
  1. ACTOS [Suspect]
     Dosage: 15 MG (15 MG)
     Route: 048
     Dates: start: 20030901

REACTIONS (2)
  - RETINAL HAEMORRHAGE [None]
  - VITREOUS HAEMORRHAGE [None]
